FAERS Safety Report 6582558-X (Version None)
Quarter: 2010Q1

REPORT INFORMATION
  Report Type: 
  Country: None (occurrence: None)
  Receive Date: 20100203
  Receipt Date: 20100119
  Transmission Date: 20100710
  Serious: Yes (Other)
  Sender: FDA-Public Use
  Company Number: 2009S1003997

PATIENT
  Age: 58 Year
  Sex: Female

DRUGS (6)
  1. PHOSPHOSODA FLAVOR NOT SPECIFIED [Suspect]
     Indication: COLONOSCOPY
     Dosage: 90 ML; TOTAL; PO
     Route: 048
     Dates: start: 20070611, end: 20070611
  2. BENICAR [Concomitant]
  3. SYNTHROID [Concomitant]
  4. VYTORIN [Concomitant]
  5. ECOTRIN [Concomitant]
  6. PREVACID [Concomitant]

REACTIONS (1)
  - RENAL FAILURE CHRONIC [None]
